FAERS Safety Report 8130219-8 (Version None)
Quarter: 2012Q1

REPORT INFORMATION
  Report Type: 
  Country: None (occurrence: None)
  Receive Date: 20120210
  Receipt Date: 20120131
  Transmission Date: 20120608
  Serious: Yes (Hospitalization)
  Sender: FDA-Public Use
  Company Number: PHFR2011GB007369

PATIENT
  Sex: Male
  Weight: 80 kg

DRUGS (3)
  1. QUETIAPINE [Concomitant]
     Indication: SCHIZOPHRENIA
     Dosage: 300 MG, UNK
     Route: 048
  2. CLOZARIL [Suspect]
     Indication: SCHIZOPHRENIA
     Dosage: 700 MG, UNK
     Route: 048
     Dates: start: 19991203
  3. LAMOTRIGINE [Concomitant]
     Indication: EPILEPSY
     Dosage: 100 MG, UNK
     Route: 048

REACTIONS (7)
  - DEHYDRATION [None]
  - PNEUMONIA [None]
  - WHITE BLOOD CELL COUNT INCREASED [None]
  - NEUTROPHIL COUNT INCREASED [None]
  - DIARRHOEA [None]
  - INFECTION [None]
  - LUNG INFECTION [None]
